FAERS Safety Report 5759092-X (Version None)
Quarter: 2008Q2

REPORT INFORMATION
  Report Type: 
  Country: None (occurrence: None)
  Receive Date: 20080604
  Receipt Date: 20080527
  Transmission Date: 20081010
  Serious: Yes (Hospitalization, Other)
  Sender: FDA-Public Use
  Company Number: TW-ELI_LILLY_AND_COMPANY-TW200805002029

PATIENT
  Age: 30 Year
  Sex: Female

DRUGS (1)
  1. CYMBALTA [Suspect]
     Indication: DYSTHYMIC DISORDER
     Dosage: 30 MG, UNK
     Route: 048
     Dates: start: 20080401, end: 20080512

REACTIONS (3)
  - DYSURIA [None]
  - KNEE ARTHROPLASTY [None]
  - MUSCLE SPASMS [None]
